FAERS Safety Report 16725542 (Version 1)
Quarter: 2019Q3

REPORT INFORMATION
  Report Type: Report from Study
  Country: US (occurrence: US)
  Receive Date: 20190821
  Receipt Date: 20190821
  Transmission Date: 20191005
  Serious: Yes (Hospitalization, Other)
  Sender: FDA-Public Use
  Company Number: US-ROCHE-2374892

PATIENT
  Sex: Female
  Weight: 68.1 kg

DRUGS (3)
  1. OCREVUS [Suspect]
     Active Substance: OCRELIZUMAB
     Indication: RELAPSING MULTIPLE SCLEROSIS
     Dosage: HALF DOSES ;ONGOING: NO
     Route: 042
     Dates: start: 2018
  2. OCREVUS [Suspect]
     Active Substance: OCRELIZUMAB
     Dosage: FULL DOSES ;ONGOING: UNKNOWN
     Route: 042
  3. BOTOX [Concomitant]
     Active Substance: ONABOTULINUMTOXINA
     Indication: AUTOMATIC BLADDER
     Dosage: ONGOING: NO
     Route: 065
     Dates: start: 2018

REACTIONS (4)
  - Urinary tract infection [Recovered/Resolved]
  - Product dose omission [Not Recovered/Not Resolved]
  - Pneumonia [Recovered/Resolved]
  - Sepsis [Recovered/Resolved]

NARRATIVE: CASE EVENT DATE: 2018
